FAERS Safety Report 4336262-9 (Version None)
Quarter: 2004Q2

REPORT INFORMATION
  Report Type: 
  Country: None (occurrence: None)
  Receive Date: 20040407
  Receipt Date: 20040319
  Transmission Date: 20050107
  Serious: Yes (Hospitalization)
  Sender: FDA-Public Use
  Company Number: EWC040338585

PATIENT
  Age: 29 Year
  Sex: Male

DRUGS (2)
  1. ZYPREXA [Suspect]
     Indication: SCHIZOPHRENIA
     Dosage: 20 MG/1 DAY
     Dates: start: 20000101
  2. VALIUM [Concomitant]

REACTIONS (4)
  - ACUTE LYMPHOCYTIC LEUKAEMIA [None]
  - ASTHENIA [None]
  - DEPRESSION [None]
  - LYMPHADENOPATHY [None]
